FAERS Safety Report 9419825 (Version 1)
Quarter: 2013Q3

REPORT INFORMATION
  Report Type: Spontaneous
  Country: US (occurrence: None)
  Receive Date: 20130723
  Receipt Date: 20130723
  Transmission Date: 20140515
  Serious: Yes (Life-Threatening, Hospitalization)
  Sender: FDA-Public Use
  Company Number: USA/USA/13/0032665

PATIENT
  Age: 73 Year
  Sex: Female

DRUGS (3)
  1. METFORMIN [Suspect]
     Indication: DIABETES MELLITUS
  2. IBUPROFEN (IBUPROFEN) [Suspect]
     Indication: HUMERUS FRACTURE
  3. LISINOPRIL (LISINOPRIL) [Suspect]
     Indication: DIABETES MELLITUS

REACTIONS (7)
  - Renal failure acute [None]
  - Hyperkalaemia [None]
  - Asthenia [None]
  - Nausea [None]
  - Oliguria [None]
  - Impaired healing [None]
  - Blood potassium increased [None]
